FAERS Safety Report 9698549 (Version 2)
Quarter: 2013Q4

REPORT INFORMATION
  Report Type: Spontaneous
  Country: US (occurrence: US)
  Receive Date: 20131120
  Receipt Date: 20131209
  Transmission Date: 20140711
  Serious: Yes (Other)
  Sender: FDA-Public Use
  Company Number: US-PFIZER INC-2013327739

PATIENT
  Age: 76 Year
  Sex: Female
  Weight: 64.4 kg

DRUGS (2)
  1. REVATIO [Suspect]
     Indication: PULMONARY FIBROSIS
     Dosage: 20 MG, 3X/DAY
  2. NIFEDICAL XL [Concomitant]
     Indication: HYPERTENSION
     Dosage: 30 MG, 1X/DAY

REACTIONS (3)
  - Neoplasm malignant [Unknown]
  - Fall [Unknown]
  - Gait disturbance [Unknown]
